FAERS Safety Report 5162065-1 (Version None)
Quarter: 2006Q4

REPORT INFORMATION
  Report Type: 
  Country: None (occurrence: None)
  Receive Date: 20061121
  Receipt Date: 20061110
  Transmission Date: 20070319
  Serious: Yes (Death, Hospitalization)
  Sender: FDA-Public Use
  Company Number: 227534

PATIENT
  Age: 65 Year
  Sex: Male
  Weight: 64 kg

DRUGS (3)
  1. MABTHERA                      (RITUXIMAB) [Suspect]
     Indication: DIFFUSE LARGE B-CELL LYMPHOMA
     Dosage: 640 MG
     Dates: start: 20060608, end: 20060630
  2. I-131             (IODINE-131 NOS) [Concomitant]
  3. TEMAZEPAM [Concomitant]

REACTIONS (19)
  - ARTHRALGIA [None]
  - BLOOD PRESSURE INCREASED [None]
  - CONVULSION [None]
  - DEHYDRATION [None]
  - DIPLOPIA [None]
  - HEADACHE [None]
  - LYMPHOMA [None]
  - MALIGNANT NEOPLASM PROGRESSION [None]
  - NASOPHARYNGEAL NEOPLASM BENIGN [None]
  - NAUSEA [None]
  - OXYGEN SATURATION DECREASED [None]
  - PAIN [None]
  - PAIN IN EXTREMITY [None]
  - PNEUMONIA ASPIRATION [None]
  - PYREXIA [None]
  - VIITH NERVE PARALYSIS [None]
  - VISION BLURRED [None]
  - VITH NERVE PARALYSIS [None]
  - VOMITING [None]
